FAERS Safety Report 16375461 (Version 4)
Quarter: 2019Q3

REPORT INFORMATION
  Report Type: Report from Study
  Country: BE (occurrence: BE)
  Receive Date: 20190531
  Receipt Date: 20190826
  Transmission Date: 20191004
  Serious: Yes (Other)
  Sender: FDA-Public Use
  Company Number: BE-ROCHE-2250858

PATIENT
  Age: 79 Year
  Sex: Male
  Weight: 75 kg

DRUGS (15)
  1. FLUOROURACIL. [Suspect]
     Active Substance: FLUOROURACIL
     Indication: COLORECTAL CANCER METASTATIC
     Dosage: ON 04/FEB/2019, RECEIVED MOST RECENT DOSE OF FLUOROURACIL 3872.8 (UNIT NOT REPORTED).
     Route: 042
     Dates: start: 20181022
  2. IRINOTECAN [Suspect]
     Active Substance: IRINOTECAN
     Route: 042
     Dates: start: 20181203
  3. OXALIPLATIN. [Suspect]
     Active Substance: OXALIPLATIN
     Indication: COLORECTAL CANCER METASTATIC
     Route: 042
  4. PARACETAMOL [Concomitant]
     Active Substance: ACETAMINOPHEN
  5. FLUOROURACIL. [Suspect]
     Active Substance: FLUOROURACIL
     Route: 042
     Dates: start: 20181203
  6. XARELTO [Concomitant]
     Active Substance: RIVAROXABAN
     Route: 065
     Dates: start: 20161227
  7. TRADONAL [Concomitant]
     Active Substance: TRAMADOL HYDROCHLORIDE
  8. IRINOTECAN [Suspect]
     Active Substance: IRINOTECAN
     Indication: COLORECTAL CANCER METASTATIC
     Dosage: ON 04/FEB/2019, RECEIVED MOST RECENT DOSE OF IRINOTECAN259 (UNIT NOT REPORTED).
     Route: 042
     Dates: start: 20181022
  9. BROMAZEPAM [Concomitant]
     Active Substance: BROMAZEPAM
  10. AMLOR [Concomitant]
     Active Substance: AMLODIPINE BESYLATE
     Route: 065
  11. FOLINIC ACID [Suspect]
     Active Substance: LEUCOVORIN
     Indication: COLORECTAL CANCER METASTATIC
     Route: 042
     Dates: start: 20181022
  12. BEVACIZUMAB. [Suspect]
     Active Substance: BEVACIZUMAB
     Route: 042
     Dates: start: 20181203
  13. ZYLORIC [Concomitant]
     Active Substance: ALLOPURINOL
     Route: 065
  14. BEVACIZUMAB. [Suspect]
     Active Substance: BEVACIZUMAB
     Indication: COLORECTAL CANCER METASTATIC
     Dosage: MOST RECENT DOSE AND DATE OF BEVACIZUMAB UPDATED TO 385 MG AND 04/FEB/2019
     Route: 042
     Dates: start: 20181022
  15. AMLOR [Concomitant]
     Active Substance: AMLODIPINE BESYLATE
     Route: 065

REACTIONS (15)
  - Diarrhoea [Recovered/Resolved]
  - Neuropathy peripheral [Not Recovered/Not Resolved]
  - Dysphonia [Not Recovered/Not Resolved]
  - Proteinuria [Not Recovered/Not Resolved]
  - Stomatitis [Recovered/Resolved]
  - Malaise [Not Recovered/Not Resolved]
  - Respiratory tract infection [Not Recovered/Not Resolved]
  - Nasopharyngitis [Recovered/Resolved]
  - Anal haemorrhage [Recovered/Resolved]
  - Fatigue [Not Recovered/Not Resolved]
  - Epistaxis [Not Recovered/Not Resolved]
  - Syncope [Recovered/Resolved]
  - Dysphonia [Not Recovered/Not Resolved]
  - Constipation [Not Recovered/Not Resolved]
  - Epistaxis [Recovered/Resolved]

NARRATIVE: CASE EVENT DATE: 20181109
